FAERS Safety Report 5976134-7 (Version None)
Quarter: 2008Q4

REPORT INFORMATION
  Report Type: 
  Country: None (occurrence: None)
  Receive Date: 20081202
  Receipt Date: 20081127
  Transmission Date: 20090506
  Serious: Yes (Hospitalization)
  Sender: FDA-Public Use
  Company Number: FR-ASTRAZENECA-2008CG01752

PATIENT
  Age: 21338 Day
  Sex: Female

DRUGS (5)
  1. ATACAND [Suspect]
     Indication: HYPERTENSION
     Route: 048
     Dates: start: 20080605, end: 20080611
  2. PROTELOS [Suspect]
     Indication: OSTEOPOROSIS
     Route: 048
     Dates: start: 20080427, end: 20080602
  3. ACETAMINOPHEN [Suspect]
     Indication: PAIN
     Route: 048
     Dates: end: 20080611
  4. IMPORTAL [Suspect]
     Indication: CONSTIPATION
     Dosage: ONE TO TWO DF DAILY
     Route: 048
     Dates: end: 20080611
  5. VOLTAREN [Suspect]
     Indication: PAIN
     Route: 061
     Dates: end: 20080611

REACTIONS (1)
  - DRUG RASH WITH EOSINOPHILIA AND SYSTEMIC SYMPTOMS [None]
